FAERS Safety Report 5128597-7 (Version None)
Quarter: 2006Q4

REPORT INFORMATION
  Report Type: 
  Country: None (occurrence: None)
  Receive Date: 20061011
  Receipt Date: 20060928
  Transmission Date: 20070319
  Serious: Yes (Death, Hospitalization)
  Sender: FDA-Public Use
  Company Number: 2006121053

PATIENT
  Sex: Female

DRUGS (3)
  1. CELEBREX [Suspect]
     Dosage: ORAL
     Route: 048
     Dates: start: 20050101, end: 20051027
  2. BEXTRA [Suspect]
     Dosage: ORAL
     Route: 048
     Dates: start: 20011101, end: 20020901
  3. VIOXX [Suspect]
     Dosage: ORAL
     Route: 048
     Dates: start: 20010401, end: 20040901

REACTIONS (1)
  - MYOCARDIAL INFARCTION [None]
